FAERS Safety Report 8117801-9 (Version None)
Quarter: 2012Q1

REPORT INFORMATION
  Report Type: 
  Country: None (occurrence: None)
  Receive Date: 20120131
  Receipt Date: 20110912
  Transmission Date: 20120608
  Serious: Yes (Hospitalization)
  Sender: FDA-Public Use
  Company Number: 2011004762

PATIENT
  Age: 51 Year
  Sex: Female

DRUGS (3)
  1. SPIRONOLACTONE [Concomitant]
  2. MILK THISTLE SEED [Concomitant]
  3. ERYTHROMYCIN [Suspect]
     Indication: CELLULITIS
     Dosage: ORAL
     Route: 048

REACTIONS (1)
  - PANCREATITIS ACUTE [None]
